FAERS Safety Report 21725605 (Version 2)
Quarter: 2022Q4

REPORT INFORMATION
  Report Type: Report from Study
  Country: US (occurrence: US)
  Receive Date: 20221214
  Receipt Date: 20221218
  Transmission Date: 20230113
  Serious: Yes (Other)
  Sender: FDA-Public Use
  Company Number: US-ABBVIE-4233180

PATIENT
  Sex: Female

DRUGS (1)
  1. HUMIRA [Suspect]
     Active Substance: ADALIMUMAB
     Indication: Psoriasis
     Route: 058

REACTIONS (4)
  - Cataract [Not Recovered/Not Resolved]
  - Triple negative breast cancer [Unknown]
  - Intraductal proliferative breast lesion [Unknown]
  - Skin exfoliation [Not Recovered/Not Resolved]
